FAERS Safety Report 10838450 (Version 1)
Quarter: 2015Q1

REPORT INFORMATION
  Report Type: Report from Study
  Country: US (occurrence: US)
  Receive Date: 20150219
  Receipt Date: 20150219
  Transmission Date: 20150721
  Serious: No
  Sender: FDA-Public Use
  Company Number: US-ABBVIE-14P-163-1225358-00

PATIENT
  Age: 55 Year
  Sex: Female
  Weight: 63.56 kg

DRUGS (12)
  1. DOMPERIDON [Concomitant]
     Active Substance: DOMPERIDONE
     Indication: GASTROOESOPHAGEAL REFLUX DISEASE
  2. FIBER [Concomitant]
     Active Substance: PSYLLIUM HUSK
     Indication: CROHN^S DISEASE
  3. CLARITIN [Concomitant]
     Active Substance: LORATADINE
     Indication: HYPERSENSITIVITY
  4. BACTRIM [Concomitant]
     Active Substance: SULFAMETHOXAZOLE\TRIMETHOPRIM
     Indication: INTERSTITIAL LUNG DISEASE
     Dosage: EVERY WEEK AS PROPHYLLAXIS
  5. CALCIUM [Concomitant]
     Active Substance: CALCIUM
     Indication: VITAMIN SUPPLEMENTATION
  6. ASPIRIN. [Concomitant]
     Active Substance: ASPIRIN
     Indication: PROPHYLAXIS
  7. PREDNISONE. [Concomitant]
     Active Substance: PREDNISONE
     Indication: RHEUMATOID ARTHRITIS
  8. OXYGEN. [Concomitant]
     Active Substance: OXYGEN
     Indication: INTERSTITIAL LUNG DISEASE
     Dosage: AT BED TIME
  9. HUMIRA [Suspect]
     Active Substance: ADALIMUMAB
     Indication: RHEUMATOID ARTHRITIS
     Route: 058
     Dates: start: 201009, end: 201311
  10. AMBIEN [Concomitant]
     Active Substance: ZOLPIDEM TARTRATE
     Indication: SLEEP DISORDER
  11. MELATONIN [Concomitant]
     Active Substance: MELATONIN
     Indication: SLEEP DISORDER
  12. MYCOPHENOLATE [Concomitant]
     Active Substance: MYCOPHENOLIC ACID
     Indication: INTERSTITIAL LUNG DISEASE

REACTIONS (3)
  - Rheumatoid arthritis [Unknown]
  - Drug specific antibody present [Unknown]
  - Dysphagia [Unknown]

NARRATIVE: CASE EVENT DATE: 201311
